FAERS Safety Report 10257821 (Version 2)
Quarter: 2014Q3

REPORT INFORMATION
  Report Type: Spontaneous
  Country: US (occurrence: US)
  Receive Date: 20140625
  Receipt Date: 20140715
  Transmission Date: 20150326
  Serious: Yes (Hospitalization, Other)
  Sender: FDA-Public Use
  Company Number: US-AMGEN-USASP2014046616

PATIENT
  Age: 31 Year
  Sex: Female
  Weight: 56.24 kg

DRUGS (4)
  1. IRON [Concomitant]
     Active Substance: IRON
     Dosage: UNK UNK, QD
     Route: 048
  2. ENBREL [Suspect]
     Active Substance: ETANERCEPT
     Indication: PSORIATIC ARTHROPATHY
     Dosage: 50 MG, QWK
     Route: 065
     Dates: start: 200605, end: 201201
  3. ENBREL [Suspect]
     Active Substance: ETANERCEPT
     Indication: PSORIASIS
  4. FISH OIL [Concomitant]
     Active Substance: FISH OIL
     Dosage: UNK UNK, BID
     Route: 048

REACTIONS (3)
  - Failed induction of labour [Recovered/Resolved]
  - Prolonged labour [Recovered/Resolved]
  - Labour complication [Recovered/Resolved]

NARRATIVE: CASE EVENT DATE: 20091216
